FAERS Safety Report 12555138 (Version 1)
Quarter: 2016Q3

REPORT INFORMATION
  Report Type: Spontaneous
  Country: GB (occurrence: GB)
  Receive Date: 20160714
  Receipt Date: 20160714
  Transmission Date: 20161109
  Serious: Yes (Other)
  Sender: FDA-Public Use
  Company Number: GB-UCBSA-2016020163

PATIENT
  Sex: Female

DRUGS (1)
  1. NEUPRO [Suspect]
     Active Substance: ROTIGOTINE
     Indication: RESTLESS LEGS SYNDROME
     Dosage: 2 MG, ONCE DAILY (QD)
     Route: 062
     Dates: start: 200301

REACTIONS (8)
  - Insomnia [Unknown]
  - Drug ineffective [Unknown]
  - Product adhesion issue [Unknown]
  - Dry skin [Unknown]
  - Arthralgia [Unknown]
  - Memory impairment [Unknown]
  - Suicidal behaviour [Unknown]
  - Wrong technique in product usage process [Unknown]
